FAERS Safety Report 10429721 (Version 4)
Quarter: 2014Q4

REPORT INFORMATION
  Report Type: Spontaneous
  Country: US (occurrence: US)
  Receive Date: 20140904
  Receipt Date: 20141001
  Transmission Date: 20150528
  Serious: Yes (Other)
  Sender: FDA-Public Use
  Company Number: US-JNJFOC-20140900026

PATIENT

DRUGS (1)
  1. NUCYNTA [Suspect]
     Active Substance: TAPENTADOL HYDROCHLORIDE
     Indication: PRODUCT USED FOR UNKNOWN INDICATION
     Route: 065

REACTIONS (20)
  - Dizziness [Unknown]
  - Accidental exposure to product [Unknown]
  - Oedema [Unknown]
  - Dyspnoea [Unknown]
  - Product use issue [Unknown]
  - Lethargy [Unknown]
  - Hallucination [Unknown]
  - Urticaria [Unknown]
  - Pallor [Unknown]
  - Vertigo [Unknown]
  - Pruritus [Unknown]
  - Coma [Unknown]
  - Respiratory depression [Unknown]
  - Tachycardia [Unknown]
  - Dysarthria [Unknown]
  - Miosis [Unknown]
  - Somnolence [Unknown]
  - Vomiting [Unknown]
  - Delusion [Unknown]
  - Nausea [Unknown]
